FAERS Safety Report 22846161 (Version 2)
Quarter: 2023Q4

REPORT INFORMATION
  Report Type: Report from Study
  Country: CA (occurrence: CA)
  Receive Date: 20230821
  Receipt Date: 20231025
  Transmission Date: 20240110
  Serious: Yes (Hospitalization, Other)
  Sender: FDA-Public Use
  Company Number: CA-CELLTRION INC.-2023CA016457

PATIENT

DRUGS (1)
  1. RITUXIMAB [Suspect]
     Active Substance: RITUXIMAB
     Indication: Myasthenia gravis
     Dosage: 1000 MG
     Route: 042

REACTIONS (9)
  - Subcutaneous emphysema [Recovering/Resolving]
  - Pelvic fluid collection [Recovering/Resolving]
  - Wound [Recovering/Resolving]
  - Generalised oedema [Recovering/Resolving]
  - Malaise [Recovering/Resolving]
  - Necrotising soft tissue infection [Recovering/Resolving]
  - Septic shock [Recovering/Resolving]
  - Product use in unapproved indication [Recovering/Resolving]
  - Intentional product use issue [Unknown]
